FAERS Safety Report 12355741 (Version 1)
Quarter: 2016Q2

REPORT INFORMATION
  Report Type: Spontaneous
  Country: US (occurrence: US)
  Receive Date: 20160511
  Receipt Date: 20160511
  Transmission Date: 20160815
  Serious: Yes (Congenital Anomaly, Other)
  Sender: FDA-Public Use
  Company Number: PHHY2016US063862

PATIENT
  Sex: Female
  Weight: 3.3 kg

DRUGS (2)
  1. ONDANSETRON [Suspect]
     Active Substance: ONDANSETRON
     Indication: FOETAL EXPOSURE DURING PREGNANCY
     Route: 064
  2. TERBUTALINE [Suspect]
     Active Substance: TERBUTALINE
     Indication: FOETAL EXPOSURE DURING PREGNANCY
     Route: 064

REACTIONS (7)
  - Hypotonia neonatal [Unknown]
  - Cleft palate [Unknown]
  - Congenital scoliosis [Unknown]
  - Congenital jaw malformation [Unknown]
  - Foetal exposure during pregnancy [Unknown]
  - Motor developmental delay [Unknown]
  - Speech disorder developmental [Unknown]
